FAERS Safety Report 10207695 (Version 2)
Quarter: 2014Q2

REPORT INFORMATION
  Report Type: Spontaneous
  Country: US (occurrence: US)
  Receive Date: 20140530
  Receipt Date: 20140609
  Transmission Date: 20141212
  Serious: Yes (Life-Threatening)
  Sender: FDA-Public Use
  Company Number: US-B.I. PHARMACEUTICALS,INC./RIDGEFIELD-2014-BI-24047BP

PATIENT
  Age: 78 Year
  Sex: 0

DRUGS (14)
  1. PRADAXA [Suspect]
     Indication: ATRIAL FIBRILLATION
     Dosage: 300 MG
     Route: 065
     Dates: start: 201311, end: 20140501
  2. ALBUTEROL [Concomitant]
     Route: 065
  3. INSULIN [Concomitant]
     Route: 065
  4. PRAVASTATIN [Concomitant]
     Route: 065
  5. BENAZEPRIL [Concomitant]
     Route: 065
  6. CLONIDINE [Concomitant]
     Route: 065
  7. HYDRALAZINE [Concomitant]
     Route: 065
  8. NEURONTIN [Concomitant]
     Route: 065
  9. TRAMADOL [Concomitant]
     Route: 065
  10. LASIX [Concomitant]
     Route: 065
  11. JANUMET [Concomitant]
     Route: 065
  12. MIRALAX [Concomitant]
     Route: 065
  13. AMITIZA [Concomitant]
     Route: 065
  14. POTASSIUM [Concomitant]
     Route: 065

REACTIONS (1)
  - Ischaemic stroke [Unknown]
